FAERS Safety Report 9441013 (Version 1)
Quarter: 2013Q3

REPORT INFORMATION
  Report Type: Spontaneous
  Country: US (occurrence: None)
  Receive Date: 20130801
  Receipt Date: 20130801
  Transmission Date: 20140515
  Serious: Yes (Life-Threatening, Other)
  Sender: FDA-Public Use
  Company Number: 001573407A

PATIENT
  Age: 12 Year
  Sex: Male

DRUGS (2)
  1. PROACTIV RENEWING CLEANSER [Suspect]
     Indication: ACNE
     Dosage: 07/02/2013 ONCE DAILY DERMAL
  2. PROACTIV 3 REPAIRING TREATMENT [Suspect]
     Indication: ACNE
     Dosage: 07/02/2013 ONCE DAILY DERMAL

REACTIONS (7)
  - Erythema [None]
  - Swelling [None]
  - Pruritus [None]
  - Urticaria [None]
  - Throat tightness [None]
  - Swelling face [None]
  - Pharyngeal oedema [None]
